FAERS Safety Report 10780293 (Version 1)
Quarter: 2015Q1

REPORT INFORMATION
  Report Type: Spontaneous
  Country: US (occurrence: US)
  Receive Date: 20150210
  Receipt Date: 20150210
  Transmission Date: 20150721
  Serious: No
  Sender: FDA-Public Use
  Company Number: US-GLAXOSMITHKLINE-A1075899A

PATIENT

DRUGS (1)
  1. TYKERB [Suspect]
     Active Substance: LAPATINIB DITOSYLATE
     Indication: BREAST CANCER
     Dosage: TWO 250 MG TABLETS (500 MG) TWICE DAILYON RESTART; 500 MG ONCE DAILY
     Route: 065
     Dates: start: 20140316, end: 201405

REACTIONS (2)
  - Blood potassium decreased [Unknown]
  - Diarrhoea [Not Recovered/Not Resolved]
